FAERS Safety Report 7310877-8 (Version None)
Quarter: 2011Q1

REPORT INFORMATION
  Report Type: 
  Country: None (occurrence: None)
  Receive Date: 20110210
  Receipt Date: 20110202
  Transmission Date: 20110831
  Serious: Yes (Death)
  Sender: FDA-Public Use
  Company Number: UTC-005083

PATIENT
  Age: 82 Year
  Sex: Female
  Weight: 68.9 kg

DRUGS (5)
  1. COUMADIN [Concomitant]
  2. DIURETICS (DIURETICS) [Concomitant]
  3. REMODULIN [Suspect]
     Indication: PULMONARY ARTERIAL HYPERTENSION
     Dosage: 57.6 MG/KG (0.04 MG/KG, 1 IN 1 MIN), SUBCUTANEOUS
     Route: 058
     Dates: start: 20051222, end: 20101228
  4. LETAIRIS (AMBRISENTAN) [Concomitant]
  5. REVATIO [Concomitant]

REACTIONS (1)
  - DEATH [None]
